FAERS Safety Report 7364978-9 (Version None)
Quarter: 2011Q1

REPORT INFORMATION
  Report Type: 
  Country: None (occurrence: None)
  Receive Date: 20110321
  Receipt Date: 20110308
  Transmission Date: 20110831
  Serious: Yes (Hospitalization, Other)
  Sender: FDA-Public Use
  Company Number: US-JNJFOC-20060300039

PATIENT
  Sex: Female
  Weight: 59.5 kg

DRUGS (7)
  1. INFLIXIMAB [Suspect]
     Route: 042
  2. INFLIXIMAB [Suspect]
     Route: 042
  3. INFLIXIMAB [Suspect]
     Route: 042
  4. MERCAPTOPURINE [Concomitant]
  5. INFLIXIMAB [Suspect]
     Indication: CROHN'S DISEASE
     Route: 042
  6. INFLIXIMAB [Suspect]
     Route: 042
  7. ZOSYN [Concomitant]
     Route: 042

REACTIONS (2)
  - CROHN'S DISEASE [None]
  - INFECTION [None]
